FAERS Safety Report 10150426 (Version 2)
Quarter: 2014Q2

REPORT INFORMATION
  Report Type: Report from Study
  Country: US (occurrence: US)
  Receive Date: 20140502
  Receipt Date: 20140502
  Transmission Date: 20141212
  Serious: Yes (Other)
  Sender: FDA-Public Use
  Company Number: US-ASTRAZENECA-2014SE19985

PATIENT
  Age: 82 Year
  Sex: Female
  Weight: 65.8 kg

DRUGS (1)
  1. CRESTOR [Suspect]
     Indication: BLOOD CHOLESTEROL INCREASED
     Route: 048
     Dates: start: 20111228, end: 201310

REACTIONS (4)
  - Lung disorder [Recovering/Resolving]
  - Dyspnoea [Unknown]
  - Amnesia [Unknown]
  - Dyspnoea [Unknown]
